FAERS Safety Report 17217480 (Version 1)
Quarter: 2019Q4

REPORT INFORMATION
  Report Type: Spontaneous
  Country: GB (occurrence: GB)
  Receive Date: 20191231
  Receipt Date: 20191231
  Transmission Date: 20200122
  Serious: Yes (Other)
  Sender: FDA-Public Use
  Company Number: GB-TEVA-2019-GB-1159579

PATIENT
  Age: 79 Year
  Sex: Female
  Weight: 44 kg

DRUGS (13)
  1. RISEDRONATE SODIUM. [Concomitant]
     Active Substance: RISEDRONATE SODIUM
     Dosage: 1 DOSAGE FORM PER WEEK
     Dates: start: 20170220
  2. PARACETAMOL [Concomitant]
     Active Substance: ACETAMINOPHEN
     Dosage: TAKE 1 OR 2 4 TIMES/DAY
     Dates: start: 20120618
  3. DERMOL [Concomitant]
     Active Substance: BENZALKONIUM CHLORIDE\CHLORHEXIDINE HYDROCHLORIDE\ISOPROPYL MYRISTATE\PARAFFIN
     Dosage: USE AS SOAP SUBSTITUTE
     Dates: start: 20151110
  4. TRAZODONE [Concomitant]
     Active Substance: TRAZODONE HYDROCHLORIDE
     Dosage: 2 DOSAGE FORMS DAILY; ONE TO TWO HOURS BEFORE BED
     Dates: start: 20181112
  5. NADOLOL. [Concomitant]
     Active Substance: NADOLOL
     Dosage: 2 DOSAGE FORMS PER DAY
     Dates: start: 20180312
  6. FEXOFENADINE [Concomitant]
     Active Substance: FEXOFENADINE HYDROCHLORIDE
     Dosage: 1 DOSAGE FORM PER DAY
     Dates: start: 20190812, end: 20190911
  7. INDAPAMIDE. [Suspect]
     Active Substance: INDAPAMIDE
     Dosage: 2.5 MILLIGRAM DAILY; EACH MORNING
     Dates: start: 20190829
  8. ADCAL [Concomitant]
     Dosage: 2 DOSAGE FORMS PER DAY
     Dates: start: 20180315
  9. GAVISCON ADVANCE [Concomitant]
     Active Substance: POTASSIUM BICARBONATE\SODIUM ALGINATE
     Dosage: 1 DOSAGE FORM
     Dates: start: 20190705, end: 20190802
  10. CANDESARTAN. [Concomitant]
     Active Substance: CANDESARTAN
     Dosage: 1 DOSAGE FORM PER DAY
     Dates: start: 20181112
  11. ACETYLSALICYLIC ACID [Concomitant]
     Active Substance: ASPIRIN
     Dosage: 1 DOSAGE FORM PER DAY
     Dates: start: 20180312
  12. RANITIDINE. [Concomitant]
     Active Substance: RANITIDINE
     Dosage: 1 DOSAGE FORMS DAILY; AT NIGHT (TO PROTECT STOMACH FROM ASPI...
     Dates: start: 20180410
  13. LATANOPROST. [Concomitant]
     Active Substance: LATANOPROST
     Dosage: BOTH EYES (1GTT PER DAY)
     Dates: start: 20180409

REACTIONS (1)
  - Acute kidney injury [Unknown]

NARRATIVE: CASE EVENT DATE: 20191002
